FAERS Safety Report 14577040 (Version 2)
Quarter: 2018Q1

REPORT INFORMATION
  Report Type: Report from Study
  Country: US (occurrence: US)
  Receive Date: 20180227
  Receipt Date: 20180306
  Transmission Date: 20180509
  Serious: Yes (Hospitalization, Other)
  Sender: FDA-Public Use
  Company Number: US-GILEAD-2018-0316356

PATIENT
  Age: 79 Year
  Sex: Female
  Weight: 67.57 kg

DRUGS (15)
  1. DEMADEX [Concomitant]
     Active Substance: TORSEMIDE
  2. ALDACTONE [Concomitant]
     Active Substance: SPIRONOLACTONE
  3. VITAMIN D                          /00107901/ [Concomitant]
     Active Substance: ERGOCALCIFEROL
  4. GABAPENTIN. [Concomitant]
     Active Substance: GABAPENTIN
  5. ZETIA [Concomitant]
     Active Substance: EZETIMIBE
  6. Q-10 CO-ENZYME [Concomitant]
  7. ADCIRCA [Concomitant]
     Active Substance: TADALAFIL
  8. AMBRISENTAN [Suspect]
     Active Substance: AMBRISENTAN
     Indication: PULMONARY ARTERIAL HYPERTENSION
     Dosage: 10 MG, QD
     Route: 048
     Dates: start: 20160715
  9. ZYLOPRIM [Concomitant]
     Active Substance: ALLOPURINOL
  10. OXYGEN. [Concomitant]
     Active Substance: OXYGEN
  11. PROTONIX                           /00661201/ [Concomitant]
     Active Substance: OMEPRAZOLE
  12. CALCIUM 500+D [Concomitant]
     Active Substance: CALCIUM\VITAMIN D
  13. ASPIRIN 81 [Concomitant]
     Active Substance: ASPIRIN
  14. TADALAFIL [Concomitant]
     Active Substance: TADALAFIL
  15. POTASSIUM [Concomitant]
     Active Substance: POTASSIUM

REACTIONS (9)
  - Chest pain [Recovered/Resolved]
  - Oxygen saturation decreased [Not Recovered/Not Resolved]
  - Condition aggravated [Not Recovered/Not Resolved]
  - Dyspnoea exertional [Recovered/Resolved]
  - Dyspnoea at rest [Recovered/Resolved]
  - Nasopharyngitis [Recovered/Resolved]
  - Pneumonia [Recovered/Resolved]
  - Bronchitis [Unknown]
  - Hypoxia [Recovered/Resolved]

NARRATIVE: CASE EVENT DATE: 201801
